FAERS Safety Report 8719808 (Version 2)
Quarter: 2012Q4

REPORT INFORMATION
  Report Type: 
  Country: NL (occurrence: NL)
  Receive Date: 20120813
  Receipt Date: 20120917
  Transmission Date: 20130627
  Serious: Yes (Other)
  Sender: FDA-Public Use
  Company Number: PHHY2012NL069320

PATIENT
  Age: 72 Year
  Sex: Male

DRUGS (8)
  1. ZOMETA [Suspect]
     Indication: PROSTATE CANCER
     Dosage: 4 mg/5ml
     Dates: start: 20101122
  2. ZOMETA [Suspect]
     Dosage: 4 mg/100ml once per 28 days
     Dates: start: 20110221
  3. ZOMETA [Suspect]
     Dosage: 4 mg/100ml once per 28 days
     Dates: start: 20120716
  4. ZOMETA [Suspect]
     Dosage: 4 mg/100ml once per 28 days
     Dates: start: 20120810, end: 20120810
  5. ACENOCOUMAROL [Concomitant]
  6. METFORMINE [Concomitant]
  7. LIPITOR [Concomitant]
  8. METOPROLOL [Concomitant]

REACTIONS (5)
  - General physical health deterioration [Unknown]
  - Terminal state [Unknown]
  - Malaise [Unknown]
  - Neoplasm progression [Unknown]
  - Malignant neoplasm progression [Unknown]
